FAERS Safety Report 9089960 (Version 1)
Quarter: 2013Q1

REPORT INFORMATION
  Report Type: Report from Study
  Country: US (occurrence: US)
  Receive Date: 20130201
  Receipt Date: 20130201
  Transmission Date: 20140127
  Serious: No
  Sender: FDA-Public Use
  Company Number: US-ABBOTT-12P-163-1021143-00

PATIENT
  Age: 66 Year
  Sex: Male

DRUGS (12)
  1. HUMIRA [Suspect]
     Indication: PSORIATIC ARTHROPATHY
     Dates: start: 20121126
  2. STARLIX [Concomitant]
     Indication: DIABETES MELLITUS
  3. METFORMIN [Concomitant]
     Indication: DIABETES MELLITUS
  4. PRAVASTATIN [Concomitant]
     Indication: BLOOD CHOLESTEROL
     Dosage: 40MG DAILY
  5. LOSARTAN [Concomitant]
     Indication: BLOOD PRESSURE
  6. ACETAMINOPHEN [Concomitant]
     Indication: PRODUCT USED FOR UNKNOWN INDICATION
  7. METHOTREXATE [Concomitant]
     Indication: PSORIASIS
     Dosage: 6 TABLETS WEEKLY
  8. ATENOLOL [Concomitant]
     Indication: BLOOD PRESSURE
     Dosage: 50MG IN MORNING 20MG IN EVENING
  9. ALLOPURINOL [Concomitant]
     Indication: GOUT
     Dosage: 150MG DAILY
  10. CLOBEX [Concomitant]
     Indication: PSORIASIS
     Dosage: SPRAY
  11. OMEGA FISH OIL [Concomitant]
     Indication: PRODUCT USED FOR UNKNOWN INDICATION
     Dosage: 1000MG DAILY
  12. FOLIC ACID [Concomitant]
     Indication: PSORIASIS
     Dosage: 5 TABLETS WEEKLY

REACTIONS (2)
  - Injection site pain [Recovered/Resolved]
  - Incorrect dose administered [Recovered/Resolved]
